FAERS Safety Report 5919509-4 (Version None)
Quarter: 2008Q4

REPORT INFORMATION
  Report Type: 
  Country: None (occurrence: None)
  Receive Date: 20081015
  Receipt Date: 20081007
  Transmission Date: 20090506
  Serious: Yes (Hospitalization)
  Sender: FDA-Public Use
  Company Number: JP-SANOFI-SYNTHELABO-F01200801544

PATIENT
  Age: 74 Year
  Sex: Male
  Weight: 59 kg

DRUGS (5)
  1. WARFARIN SODIUM [Suspect]
     Indication: THROMBOSIS PROPHYLAXIS
     Dosage: 1 MG
     Route: 048
     Dates: start: 20070502, end: 20071230
  2. LEUCOVORIN CALCIUM [Suspect]
     Route: 042
     Dates: start: 20071219, end: 20071219
  3. FLUOROURACIL [Suspect]
     Dosage: 400 MG/M2 BOLUS + 2400 MG/M2 1 X PER 3 DAYS IV DRIP ; 19-SEP-07 DRIP DECREASED 2180 MG/M2
     Route: 042
     Dates: start: 20071221, end: 20071221
  4. BEVACIZUMAB [Suspect]
     Dosage: UNK
     Route: 041
     Dates: start: 20071205, end: 20071205
  5. OXALIPLATIN [Suspect]
     Indication: COLON CANCER RECURRENT
     Dosage: UNK
     Route: 042
     Dates: start: 20071219, end: 20071219

REACTIONS (1)
  - DISSEMINATED INTRAVASCULAR COAGULATION [None]
